FAERS Safety Report 23721950 (Version 4)
Quarter: 2024Q3

REPORT INFORMATION
  Report Type: Spontaneous
  Country: FR (occurrence: FR)
  Receive Date: 20240409
  Receipt Date: 20240909
  Transmission Date: 20241017
  Serious: Yes (Hospitalization, Other)
  Sender: AUROBINDO
  Company Number: FR-BRISTOL-MYERS SQUIBB COMPANY-2024-036009

PATIENT
  Age: 81 Year
  Sex: Male

DRUGS (3)
  1. APIXABAN [Suspect]
     Active Substance: APIXABAN
     Indication: Atrial fibrillation
     Dosage: 5 MILLIGRAM, TWO TIMES A DAY
     Route: 048
  2. APIXABAN [Suspect]
     Active Substance: APIXABAN
     Indication: Cerebrovascular accident prophylaxis
     Dosage: 5 MILLIGRAM, 0.5 DAYS
     Route: 048
  3. APIXABAN [Suspect]
     Active Substance: APIXABAN
     Indication: Anticoagulant therapy

REACTIONS (7)
  - Chest pain [Unknown]
  - Factor V deficiency [Unknown]
  - Haemoglobin decreased [Unknown]
  - Haematoma muscle [Unknown]
  - Platelet count decreased [Unknown]
  - Haematoma [Unknown]
  - Coagulation test abnormal [Unknown]
